FAERS Safety Report 10089277 (Version 1)
Quarter: 2014Q2

REPORT INFORMATION
  Report Type: Spontaneous
  Country: NL (occurrence: None)
  Receive Date: 20140417
  Receipt Date: 20140417
  Transmission Date: 20141212
  Serious: Yes (Death)
  Sender: FDA-Public Use
  Company Number: SYM-2013-05193

PATIENT
  Sex: Female

DRUGS (1)
  1. TIMOPTOL XE [Suspect]
     Indication: GLAUCOMA
     Route: 047

REACTIONS (1)
  - Alopecia [None]
